FAERS Safety Report 23531205 (Version 2)
Quarter: 2024Q1

REPORT INFORMATION
  Report Type: Report from Study
  Country: DE (occurrence: DE)
  Receive Date: 20240216
  Receipt Date: 20240315
  Transmission Date: 20240410
  Serious: Yes (Other)
  Sender: FDA-Public Use
  Company Number: DE-MYLANLABS-2024M1000425

PATIENT
  Sex: Female

DRUGS (2)
  1. GLATIRAMER ACETATE [Suspect]
     Active Substance: GLATIRAMER ACETATE
     Indication: Multiple sclerosis
     Dosage: 40 MILLIGRAM PER MILLILITRE, (40MG/ML 2-3XWEEKLY)
     Route: 058
     Dates: start: 20230730, end: 20240301
  2. GLATIRAMER ACETATE [Suspect]
     Active Substance: GLATIRAMER ACETATE
     Dosage: 40 MILLIGRAM PER MILLILITRE, Q3W
     Route: 058

REACTIONS (2)
  - Multiple sclerosis relapse [Unknown]
  - Injection site pain [Unknown]

NARRATIVE: CASE EVENT DATE: 20240209
